FAERS Safety Report 8200131-4 (Version None)
Quarter: 2012Q1

REPORT INFORMATION
  Report Type: 
  Country: None (occurrence: None)
  Receive Date: 20120309
  Receipt Date: 20120309
  Transmission Date: 20120608
  Serious: Yes (Other)
  Sender: FDA-Public Use
  Company Number: None

PATIENT
  Sex: Male
  Weight: 180.9852 kg

DRUGS (2)
  1. PRADAXA [Suspect]
     Indication: ANTICOAGULANT THERAPY
     Dosage: 1 OR 2 CAPSULES ONCE DAILY
     Dates: start: 20111001, end: 20120210
  2. PRADAXA [Suspect]
     Indication: ATRIAL FIBRILLATION
     Dosage: 1 OR 2 CAPSULES ONCE DAILY
     Dates: start: 20111001, end: 20120210

REACTIONS (5)
  - ARTHRALGIA [None]
  - CHROMATURIA [None]
  - INFECTION [None]
  - ABDOMINAL PAIN UPPER [None]
  - ABASIA [None]
